FAERS Safety Report 8977551 (Version 3)
Quarter: 2013Q1

REPORT INFORMATION
  Report Type: Spontaneous
  Country: US (occurrence: US)
  Receive Date: 20121219
  Receipt Date: 20130107
  Transmission Date: 20140127
  Serious: Yes (Hospitalization)
  Sender: FDA-Public Use
  Company Number: US-JNJFOC-20121206524

PATIENT
  Age: 79 Year
  Sex: Female
  Weight: 63.04 kg

DRUGS (28)
  1. DOXORUBICIN HYDROCHLORIDE [Suspect]
     Indication: OVARIAN CANCER
     Dosage: 1.7857 MG
     Route: 042
     Dates: start: 20120806, end: 20121105
  2. DOXORUBICIN HYDROCHLORIDE [Suspect]
     Indication: OVARIAN CANCER
     Route: 042
     Dates: start: 20121211
  3. INVESTIGATIONAL DRUG [Suspect]
     Indication: OVARIAN CANCER
     Route: 042
     Dates: start: 20121211
  4. INVESTIGATIONAL DRUG [Suspect]
     Indication: OVARIAN CANCER
     Dosage: ON DAYS 1, 3, 5, 15, 17 AND 19 AND EVERY 28 DAYS
     Route: 042
     Dates: start: 20120806, end: 20121121
  5. INVESTIGATIONAL  DRUG [Suspect]
     Indication: OVARIAN CANCER
     Dosage: ON DAY 1, 3, 5, 15, 17 AND 19; ONCE
     Route: 042
     Dates: start: 20120724, end: 20120724
  6. PLACEBO [Suspect]
     Indication: OVARIAN CANCER
     Route: 042
     Dates: start: 20121211
  7. PLACEBO [Suspect]
     Indication: OVARIAN CANCER
     Dosage: ON DAY 1, 3, 5, 15, 17 AND 19
     Route: 042
     Dates: start: 20120806, end: 20121121
  8. FOLIC ACID [Suspect]
     Indication: OVARIAN CANCER
     Dosage: ONCE
     Route: 042
     Dates: start: 20120724, end: 20120724
  9. VINTAFOLIDE [Suspect]
     Indication: OVARIAN CANCER
     Route: 042
     Dates: start: 20120806
  10. VINTAFOLIDE [Suspect]
     Indication: OVARIAN CANCER
     Route: 042
     Dates: start: 20121211
  11. SPIRIVA [Concomitant]
     Indication: CHRONIC OBSTRUCTIVE PULMONARY DISEASE
     Dosage: 18 MCD
     Route: 055
     Dates: start: 20121121
  12. LEVAQUIN [Concomitant]
     Indication: PNEUMONIA
     Route: 065
     Dates: start: 2012
  13. ALPRAZ [Concomitant]
     Indication: ANXIETY
     Route: 048
     Dates: start: 20110929
  14. AMLODIPINE [Concomitant]
     Indication: HYPERTENSION
     Route: 048
     Dates: start: 20110701
  15. BIAFINE [Concomitant]
     Indication: VACCINATION SITE PAIN
     Dosage: 1 APPLICATION
     Route: 061
     Dates: start: 20120806
  16. BUTALBITAL [Concomitant]
     Indication: MIGRAINE
     Dosage: 1 TABLET
     Route: 048
     Dates: start: 20090504
  17. CALCIUM [Concomitant]
     Indication: PRODUCT USED FOR UNKNOWN INDICATION
     Dosage: 2 TABLETS EVERY DAY
     Route: 048
     Dates: start: 20090504
  18. COLACE [Concomitant]
     Indication: CONSTIPATION PROPHYLAXIS
     Route: 048
     Dates: start: 20090814
  19. COMPAZINE [Concomitant]
     Indication: NAUSEA
     Route: 048
     Dates: start: 20110902
  20. FISH OIL [Concomitant]
     Indication: MEDICAL DIET
     Route: 048
     Dates: start: 20090504
  21. HYDROCHLOROTHIAZIDE [Concomitant]
     Indication: HYPERTENSION
     Route: 048
     Dates: start: 20090504
  22. HYDROXYZINE HCL [Concomitant]
     Indication: INSOMNIA
     Route: 048
     Dates: start: 20090504
  23. LEVOTHYROXINE SODIUM [Concomitant]
     Indication: PRODUCT USED FOR UNKNOWN INDICATION
     Route: 048
     Dates: start: 20090504
  24. NEULASTA [Concomitant]
     Indication: GRANULOCYTE COUNT
     Route: 058
     Dates: start: 20121004
  25. PRILOSEC [Concomitant]
     Indication: GASTROOESOPHAGEAL REFLUX DISEASE
     Dosage: OCCLUSIVE DRESSING TECHNIQUE
     Route: 048
     Dates: start: 20090504
  26. SENNA [Concomitant]
     Indication: CONSTIPATION PROPHYLAXIS
     Dosage: 2 TABLETS AS REQUIRED
     Route: 048
     Dates: start: 20090814
  27. SYSTANE [Concomitant]
     Indication: EYE DISORDER
     Route: 048
     Dates: start: 20110628
  28. ASPIRIN [Concomitant]
     Indication: PAIN
     Route: 048
     Dates: start: 20091118

REACTIONS (1)
  - Syncope [Recovered/Resolved]
